FAERS Safety Report 4342186-3 (Version None)
Quarter: 2004Q1

REPORT INFORMATION
  Report Type: 
  Country: None (occurrence: None)
  Receive Date: 20040329
  Receipt Date: 20031204
  Transmission Date: 20041129
  Serious: No
  Sender: FDA-Public Use
  Company Number: USA031254025

PATIENT
  Age: 16 Year
  Sex: Male
  Weight: 56 kg

DRUGS (3)
  1. STRATTERA [Suspect]
     Indication: ATTENTION DEFICIT/HYPERACTIVITY DISORDER
     Dosage: 40 MG/DAY
     Dates: start: 20031120
  2. HALDOL [Concomitant]
  3. ALBUTEROL [Concomitant]

REACTIONS (1)
  - ASTHMA [None]
